FAERS Safety Report 17881167 (Version 2)
Quarter: 2022Q4

REPORT INFORMATION
  Report Type: Spontaneous
  Country: DE (occurrence: DE)
  Receive Date: 20200610
  Receipt Date: 20221018
  Transmission Date: 20230113
  Serious: Yes (Hospitalization)
  Sender: FDA-Public Use
  Company Number: DE-NOVARTISPH-NVSC2020DE161175

PATIENT
  Age: 44 Year
  Sex: Female

DRUGS (2)
  1. IBUPROFEN [Suspect]
     Active Substance: IBUPROFEN
     Indication: Product used for unknown indication
     Dosage: 600 MG, (4X, TABLETTEN)
     Route: 048
  2. METHOCARBAMOL [Suspect]
     Active Substance: METHOCARBAMOL
     Indication: Product used for unknown indication
     Dosage: 750 MG, TID (2-2-2-0, TABLETTEN)
     Route: 048

REACTIONS (4)
  - Proteinuria [Unknown]
  - Swelling face [Unknown]
  - Oedema peripheral [Unknown]
  - Oedema peripheral [Unknown]
